FAERS Safety Report 21837714 (Version 2)
Quarter: 2023Q1

REPORT INFORMATION
  Report Type: Spontaneous
  Country: US (occurrence: US)
  Receive Date: 20230109
  Receipt Date: 20230123
  Transmission Date: 20230418
  Serious: No
  Sender: FDA-Public Use
  Company Number: US-PFIZER INC-202100951604

PATIENT
  Age: 71 Year
  Sex: Female

DRUGS (3)
  1. LORBRENA [Suspect]
     Active Substance: LORLATINIB
     Indication: Lung cancer metastatic
     Dosage: 25 MG, 3X/DAY
     Route: 048
  2. LORBRENA [Suspect]
     Active Substance: LORLATINIB
     Dosage: 100 MG
  3. LORBRENA [Suspect]
     Active Substance: LORLATINIB
     Dosage: 75 MG

REACTIONS (2)
  - Illness [Recovering/Resolving]
  - Off label use [Unknown]

NARRATIVE: CASE EVENT DATE: 20230118
